FAERS Safety Report 6394774-0 (Version None)
Quarter: 2009Q4

REPORT INFORMATION
  Report Type: 
  Country: None (occurrence: None)
  Receive Date: 20091009
  Receipt Date: 20090821
  Transmission Date: 20100525
  Serious: No
  Sender: FDA-Public Use
  Company Number: US-BAYER-200931305NA

PATIENT
  Sex: Female

DRUGS (3)
  1. MIRENA [Suspect]
     Indication: DRUG USE FOR UNKNOWN INDICATION
     Dosage: CONTINUOUS
     Route: 015
     Dates: start: 20070101
  2. IBUPROFEN [Concomitant]
  3. APAP TAB [Concomitant]

REACTIONS (4)
  - FUNGAL INFECTION [None]
  - VAGINAL DISCHARGE [None]
  - VAGINAL ODOUR [None]
  - VAGINITIS BACTERIAL [None]
